FAERS Safety Report 7021500-4 (Version None)
Quarter: 2010Q3

REPORT INFORMATION
  Report Type: 
  Country: None (occurrence: None)
  Receive Date: 20100929
  Receipt Date: 20100917
  Transmission Date: 20110219
  Serious: Yes (Hospitalization)
  Sender: FDA-Public Use
  Company Number: FR-GILEAD-2010-0031411

PATIENT
  Sex: Male
  Weight: 3.53 kg

DRUGS (3)
  1. VIREAD [Suspect]
     Indication: PRODUCT USED FOR UNKNOWN INDICATION
     Route: 064
     Dates: start: 20100209
  2. VALACYCLOVIR HYDROCHLORIDE [Concomitant]
     Route: 064
  3. TARDYFERON [Concomitant]
     Route: 064

REACTIONS (6)
  - APGAR SCORE LOW [None]
  - CAESAREAN SECTION [None]
  - FOETAL DISTRESS SYNDROME [None]
  - JAUNDICE [None]
  - JAUNDICE NEONATAL [None]
  - MATERNAL DRUGS AFFECTING FOETUS [None]
